FAERS Safety Report 8287458-5 (Version None)
Quarter: 2012Q2

REPORT INFORMATION
  Report Type: 
  Country: None (occurrence: None)
  Receive Date: 20120410
  Receipt Date: 20120410
  Transmission Date: 20120825
  Serious: Yes (Other)
  Sender: FDA-Public Use
  Company Number: None

PATIENT
  Sex: Male
  Weight: 74.8435 kg

DRUGS (1)
  1. DOXAZOSIN MESYLATE [Suspect]
     Indication: BENIGN PROSTATIC HYPERPLASIA
     Dosage: 2MG 1 DAILY BY MOUTH
     Route: 048
     Dates: start: 20110713, end: 20120215

REACTIONS (8)
  - URINARY TRACT DISORDER [None]
  - HYPOAESTHESIA [None]
  - DYSPNOEA [None]
  - MYALGIA [None]
  - HEADACHE [None]
  - DIZZINESS [None]
  - SOMNOLENCE [None]
  - VISUAL IMPAIRMENT [None]
